FAERS Safety Report 8416418 (Version 2)
Quarter: 2012Q4

REPORT INFORMATION
  Report Type: 
  Country: BR (occurrence: BR)
  Receive Date: 20120220
  Receipt Date: 20121018
  Transmission Date: 20130627
  Serious: No
  Sender: FDA-Public Use
  Company Number: BR-AMGEN-BRASP2012009488

PATIENT
  Age: 77 Year
  Sex: Female
  Weight: 66 kg

DRUGS (4)
  1. ENBREL [Suspect]
     Indication: RHEUMATOID ARTHRITIS
     Dosage: 50 mg, weekly
     Route: 058
     Dates: start: 201201
  2. NIMESULIDE [Concomitant]
     Indication: PAIN
     Dosage: UNK, when feeling pains
  3. OMEPRAZOL                          /00661201/ [Concomitant]
     Dosage: UNK
  4. TORLOS [Concomitant]
     Dosage: UNK

REACTIONS (5)
  - Pain in extremity [Unknown]
  - Oedema peripheral [Unknown]
  - Muscle rigidity [Unknown]
  - Arthralgia [Unknown]
  - Injection site pain [Unknown]
